FAERS Safety Report 7577865-8 (Version None)
Quarter: 2011Q2

REPORT INFORMATION
  Report Type: 
  Country: None (occurrence: None)
  Receive Date: 20110628
  Receipt Date: 20110617
  Transmission Date: 20111010
  Serious: Yes (Death, Hospitalization)
  Sender: FDA-Public Use
  Company Number: PHHO2011JP03837

PATIENT
  Sex: Female
  Weight: 44 kg

DRUGS (17)
  1. PREDNISOLONE [Suspect]
     Indication: RHEUMATOID ARTHRITIS
     Dosage: 5 MG, QD
     Route: 048
     Dates: start: 20020111, end: 20100905
  2. CODEINE SULFATE [Suspect]
     Indication: COUGH
     Dosage: 2 G, QD
     Route: 048
     Dates: start: 20100915
  3. CELECOXIB [Suspect]
     Indication: RHEUMATOID ARTHRITIS
     Dosage: 100 MG, BID
     Route: 048
     Dates: start: 20100623, end: 20100905
  4. PREDNISOLONE [Suspect]
     Dosage: 12 MG, QD
     Route: 048
     Dates: start: 20100906, end: 20100923
  5. JUVELA NICOTINATE [Suspect]
     Dosage: 200 MG, TID
     Route: 048
     Dates: start: 20100913
  6. GLYCYRON [Suspect]
     Indication: HEPATIC FUNCTION ABNORMAL
     Dosage: UNK
     Route: 048
     Dates: start: 20100913
  7. SULFAMETHOXAZOLE [Suspect]
     Dosage: UNK
     Route: 048
     Dates: start: 20100924, end: 20100927
  8. LOXOPROFEN SODIUM [Suspect]
     Indication: RHEUMATOID ARTHRITIS
     Dosage: 60 MG, BID
     Route: 048
     Dates: start: 20041228, end: 20100905
  9. DEXAMETHASONE SODIUM PHOSPHATE [Suspect]
     Indication: RHEUMATOID ARTHRITIS
     Dosage: 200 MG, QD
     Route: 042
     Dates: start: 20100911, end: 20100911
  10. ISONIAZID [Concomitant]
  11. VOLTAREN [Suspect]
     Indication: RHEUMATOID ARTHRITIS
     Dosage: 50 MG, PRN
     Dates: start: 20100706
  12. VOLTAREN [Suspect]
     Dosage: 50 MG, BID
     Route: 054
     Dates: start: 20100818, end: 20100904
  13. MAGNESIUM OXIDE HEAVY [Suspect]
     Indication: CONSTIPATION
     Dosage: 0.5 G, BID
     Route: 048
     Dates: start: 20100917
  14. OLMESARTAN MEDOXOMIL [Concomitant]
  15. FAMOTIDINE [Concomitant]
  16. BENIDIPINE HYDROCHLORIDE [Concomitant]
  17. FELBINAC [Concomitant]

REACTIONS (6)
  - DISSEMINATED INTRAVASCULAR COAGULATION [None]
  - PLEURISY [None]
  - LIVER DISORDER [None]
  - INTERSTITIAL LUNG DISEASE [None]
  - RHEUMATOID ARTHRITIS [None]
  - THROMBOTIC THROMBOCYTOPENIC PURPURA [None]
